FAERS Safety Report 4668873-5 (Version None)
Quarter: 2005Q2

REPORT INFORMATION
  Report Type: 
  Country: None (occurrence: None)
  Receive Date: 20050523
  Receipt Date: 20050225
  Transmission Date: 20051028
  Serious: Yes (Hospitalization)
  Sender: FDA-Public Use
  Company Number: US-MERCK-0503USA00100

PATIENT
  Age: 70 Year
  Sex: Female
  Weight: 81 kg

DRUGS (8)
  1. VIOXX [Suspect]
     Indication: BACK PAIN
     Route: 048
     Dates: start: 20000403, end: 20031019
  2. VIOXX [Suspect]
     Route: 048
     Dates: start: 20031020, end: 20040106
  3. VIOXX [Suspect]
     Indication: OSTEOARTHRITIS
     Route: 048
     Dates: start: 20000403, end: 20031019
  4. VIOXX [Suspect]
     Route: 048
     Dates: start: 20031020, end: 20040106
  5. NEXIUM [Concomitant]
     Route: 065
  6. DARVOCET-N 100 [Concomitant]
     Indication: PAIN
     Route: 065
  7. PSORCON [Concomitant]
     Route: 065
  8. ATENOLOL [Concomitant]
     Indication: BLOOD CHOLESTEROL INCREASED
     Route: 065
     Dates: start: 20000105, end: 20040106

REACTIONS (21)
  - ANAEMIA [None]
  - ANGINA PECTORIS [None]
  - ANHEDONIA [None]
  - ANXIETY [None]
  - CARDIAC FAILURE CONGESTIVE [None]
  - CARPAL TUNNEL SYNDROME [None]
  - CATHETER SITE HAEMORRHAGE [None]
  - CORONARY ARTERY DISEASE [None]
  - DEPRESSION [None]
  - DRUG INEFFECTIVE [None]
  - GASTRIC HAEMORRHAGE [None]
  - GASTROOESOPHAGEAL REFLUX DISEASE [None]
  - HAEMATOCHEZIA [None]
  - HAEMATOCRIT DECREASED [None]
  - HYPERCHOLESTEROLAEMIA [None]
  - HYPOTENSION [None]
  - INTERNATIONAL NORMALISED RATIO INCREASED [None]
  - MYOCARDIAL INFARCTION [None]
  - POST PROCEDURAL COMPLICATION [None]
  - VERTIGO [None]
  - WRIST FRACTURE [None]
